FAERS Safety Report 8311609-7 (Version None)
Quarter: 2012Q2

REPORT INFORMATION
  Report Type: 
  Country: None (occurrence: None)
  Receive Date: 20120425
  Receipt Date: 20120419
  Transmission Date: 20120825
  Serious: Yes (Other)
  Sender: FDA-Public Use
  Company Number: US-BAYER-2012-038649

PATIENT
  Sex: Female

DRUGS (2)
  1. YAZ [Suspect]
     Indication: CONTRACEPTION
     Dosage: UNK
     Route: 048
  2. BEYAZ [Suspect]
     Indication: CONTRACEPTION
     Dosage: UNK
     Route: 048

REACTIONS (1)
  - THROMBOSIS [None]
